FAERS Safety Report 6910943-2 (Version None)
Quarter: 2010Q3

REPORT INFORMATION
  Report Type: 
  Country: None (occurrence: None)
  Receive Date: 20100806
  Receipt Date: 20100730
  Transmission Date: 20110219
  Serious: Yes (Other)
  Sender: FDA-Public Use
  Company Number: A0817887A

PATIENT
  Age: 66 Year
  Sex: Male

DRUGS (1)
  1. AVANDIA [Suspect]
     Route: 048
     Dates: end: 20070501

REACTIONS (3)
  - AORTIC VALVE DISEASE [None]
  - CARDIAC MURMUR [None]
  - CORONARY ARTERY BYPASS [None]
